FAERS Safety Report 14586271 (Version 2)
Quarter: 2018Q1

REPORT INFORMATION
  Report Type: Spontaneous
  Country: BR (occurrence: BR)
  Receive Date: 20180301
  Receipt Date: 20180309
  Transmission Date: 20180509
  Serious: Yes (Other)
  Sender: FDA-Public Use
  Company Number: BR-TORRENT-00004296

PATIENT
  Age: 89 Year
  Sex: Female
  Weight: 70 kg

DRUGS (13)
  1. LOREDON [Suspect]
     Active Substance: TRAZODONE HYDROCHLORIDE
     Indication: FEELING OF RELAXATION
     Dosage: AT NIGHT DAILY
     Route: 048
     Dates: start: 20180219, end: 20180221
  2. ATENOLOL. [Concomitant]
     Active Substance: ATENOLOL
     Indication: HYPERTENSION
     Dosage: ONE TABLET DAILY FOR PRESSURE SINCE LONG TIME AGO
  3. RUSOVAS [Concomitant]
     Active Substance: ROSUVASTATIN
     Indication: CEREBROVASCULAR ACCIDENT
     Dosage: ONE TABLET DAILY
     Route: 048
     Dates: start: 201710
  4. DAFLON (DIOSMIN/HESPERIDIN) [Concomitant]
     Active Substance: DIOSMIN\HESPERIDIN
     Indication: THROMBOSIS PROPHYLAXIS
     Dosage: ONE TABLET DAILY
     Route: 048
     Dates: start: 2017
  5. EPEZ [Suspect]
     Active Substance: DONEPEZIL HYDROCHLORIDE
     Indication: DEMENTIA
     Route: 048
     Dates: start: 20180219, end: 20180221
  6. NESINA [Concomitant]
     Active Substance: ALOGLIPTIN BENZOATE
     Indication: DIABETES MELLITUS
     Dosage: 1 TABLET DAILY
     Route: 048
     Dates: start: 201710
  7. PROLOPA [Concomitant]
     Active Substance: BENSERAZIDE\LEVODOPA
     Indication: PARKINSON^S DISEASE
     Dosage: 4 TABLETS DAILY
     Route: 048
     Dates: start: 2013
  8. DOMPERIDONE [Concomitant]
     Active Substance: DOMPERIDONE
     Indication: GASTRIC DISORDER
     Dosage: 2 TABLETS DAILY
     Route: 048
     Dates: start: 2016
  9. BRASART [Concomitant]
     Active Substance: VALSARTAN
     Indication: HYPERTENSION
     Dosage: ONE TABLET DAILY
     Route: 048
  10. RANITIDINE HYDROCHLORIDE. [Concomitant]
     Active Substance: RANITIDINE HYDROCHLORIDE
     Indication: ABDOMINAL PAIN
     Route: 048
  11. CIPIDE [Concomitant]
     Indication: BLOOD CHOLESTEROL INCREASED
     Dosage: ONE TABLET DAILY
     Route: 048
     Dates: start: 2017
  12. AAS [Concomitant]
     Active Substance: ASPIRIN
     Indication: CEREBROVASCULAR ACCIDENT
     Dosage: ONE TABLET ON MONDAYS, WEDNESDAYS AND FRIDAYS
  13. ADIPEPT [Concomitant]
     Indication: ABDOMINAL PAIN
     Dosage: ONE TABLET AFTER BREAKFAST DAILY/ORAL FOR ?ABDOMINAL PAIN SINCE 2 OR 3 DAYS BEFORE THE CONTACT.
     Route: 048

REACTIONS (5)
  - Chills [Not Recovered/Not Resolved]
  - Fall [Not Recovered/Not Resolved]
  - Headache [Not Recovered/Not Resolved]
  - Muscle rigidity [Recovering/Resolving]
  - Gait inability [Recovering/Resolving]

NARRATIVE: CASE EVENT DATE: 201802
